FAERS Safety Report 22311505 (Version 1)
Quarter: 2023Q2

REPORT INFORMATION
  Report Type: Spontaneous
  Country: US (occurrence: US)
  Receive Date: 20230511
  Receipt Date: 20230511
  Transmission Date: 20230721
  Serious: Yes (Death, Other)
  Sender: FDA-Public Use
  Company Number: US-AMGEN-USASP2023079009

PATIENT
  Age: 61 Year
  Sex: Male

DRUGS (2)
  1. DARBEPOETIN ALFA [Suspect]
     Active Substance: DARBEPOETIN ALFA
     Indication: Myeloproliferative neoplasm
     Dosage: UNK
     Route: 065
  2. RUXOLITINIB [Concomitant]
     Active Substance: RUXOLITINIB
     Indication: Myeloproliferative neoplasm
     Route: 065

REACTIONS (1)
  - Death [Fatal]
